FAERS Safety Report 5837490-3 (Version None)
Quarter: 2008Q3

REPORT INFORMATION
  Report Type: 
  Country: None (occurrence: None)
  Receive Date: 20080807
  Receipt Date: 20080731
  Transmission Date: 20090109
  Serious: Yes (Hospitalization)
  Sender: FDA-Public Use
  Company Number: AU-BOEHRINGER INGELHEIM GMBH, GERMANY-2008-BP-12100AU

PATIENT
  Sex: Female

DRUGS (7)
  1. MOBIC [Suspect]
  2. IRBESARTAN [Suspect]
  3. PARECOXIB SODIUM [Suspect]
  4. AMIODARONE HCL [Concomitant]
  5. ESOMEPRAZOLE MAGNESIUM TRIHYDRATE [Concomitant]
  6. NORVASC [Concomitant]
     Indication: PAIN
  7. LEVOTHYROXINE SODIUM [Concomitant]

REACTIONS (2)
  - FLUID OVERLOAD [None]
  - RENAL FAILURE ACUTE [None]
